FAERS Safety Report 14833774 (Version 1)
Quarter: 2018Q2

REPORT INFORMATION
  Report Type: Spontaneous
  Country: US (occurrence: US)
  Receive Date: 20180501
  Receipt Date: 20180501
  Transmission Date: 20180711
  Serious: No
  Sender: FDA-Public Use
  Company Number: US-ROCHE-1975968

PATIENT
  Age: 84 Year
  Sex: Male

DRUGS (9)
  1. XTANDI [Suspect]
     Active Substance: ENZALUTAMIDE
     Indication: PROSTATE CANCER
     Route: 048
     Dates: start: 20170707
  2. THERMOTABS [Concomitant]
  3. XGEVA [Concomitant]
     Active Substance: DENOSUMAB
  4. TRAMADOL. [Concomitant]
     Active Substance: TRAMADOL
  5. GLUCOSE [Concomitant]
     Active Substance: DEXTROSE
  6. LUPRON [Concomitant]
     Active Substance: LEUPROLIDE ACETATE
  7. CALCIUM CARBONATE. [Concomitant]
     Active Substance: CALCIUM CARBONATE
  8. AVASTIN [Suspect]
     Active Substance: BEVACIZUMAB
     Indication: PRODUCT USED FOR UNKNOWN INDICATION
     Route: 042
     Dates: start: 20170707
  9. DORZOLAMIDE [Concomitant]
     Active Substance: DORZOLAMIDE

REACTIONS (2)
  - Fatigue [Unknown]
  - Asthenia [Recovering/Resolving]

NARRATIVE: CASE EVENT DATE: 20170708
